FAERS Safety Report 8935315 (Version 1)
Quarter: 2012Q4

REPORT INFORMATION
  Report Type: Report from Study
  Country: FR (occurrence: FR)
  Receive Date: 20121129
  Receipt Date: 20121129
  Transmission Date: 20130627
  Serious: Yes (Life-Threatening, Hospitalization)
  Sender: FDA-Public Use
  Company Number: FR-GLAXOSMITHKLINE-Z0003680A

PATIENT
  Age: 73 Year
  Sex: Female
  Weight: 73 kg

DRUGS (23)
  1. PAZOPANIB [Suspect]
     Indication: OVARIAN CANCER
     Route: 048
     Dates: start: 20100212
  2. TAREG [Concomitant]
     Indication: HYPERTENSION
     Dosage: 80MG Per day
     Route: 048
  3. AMLOR [Concomitant]
     Indication: HYPERTENSION
     Dosage: 5MG Per day
     Route: 048
  4. INDAPAMIDE [Concomitant]
     Indication: HYPERTENSION
     Dosage: 1.5MG Per day
     Route: 048
  5. TAHOR [Concomitant]
     Indication: HYPERCHOLESTEROLAEMIA
     Dosage: 10MG Per day
     Route: 048
  6. TIENAM [Concomitant]
     Indication: KIDNEY INFECTION
     Dosage: 500MG Three times per day
     Route: 042
     Dates: start: 20100331, end: 20100406
  7. LEXOMIL [Concomitant]
     Indication: ANXIETY
     Dosage: 6MG At night
     Route: 048
     Dates: start: 201003
  8. ALDACTONE [Concomitant]
     Indication: OEDEMA
     Dosage: 25MG Per day
     Route: 048
     Dates: start: 201005
  9. INEXIUM [Concomitant]
     Dosage: 20MG Per day
     Route: 048
     Dates: start: 201005
  10. ROCEPHINE [Concomitant]
     Indication: INFECTION
     Dosage: 1G Single dose
     Route: 030
     Dates: start: 201005
  11. KARDEGIC [Concomitant]
     Dosage: 75MG Per day
     Route: 048
     Dates: start: 201005
  12. CARDENSIEL [Concomitant]
     Dosage: 2.5MG Per day
     Route: 048
     Dates: start: 201005
  13. TRIATEC [Concomitant]
     Indication: HYPERTENSION
     Dosage: 2.5MG Per day
     Route: 048
  14. DOBUTAMINE [Concomitant]
     Indication: CARDIOMYOPATHY
     Route: 042
     Dates: start: 20100309, end: 20100330
  15. NORADRENALINE [Concomitant]
     Dosage: 1MG Twenty four times per day
     Route: 042
     Dates: start: 201005, end: 20100520
  16. CLAFORAN [Concomitant]
     Indication: ANTIBIOTIC THERAPY
     Dosage: 1G Every 3 days
     Route: 042
     Dates: end: 20100520
  17. TAZOCILLINE [Concomitant]
     Indication: ANTIBIOTIC THERAPY
     Dosage: 4G Three times per day
     Route: 042
     Dates: start: 20100520, end: 20100526
  18. OFLOCET [Concomitant]
     Indication: ANTIBIOTIC THERAPY
     Dosage: 200MG Per day
     Route: 042
     Dates: start: 201005, end: 201005
  19. CALCIPARINE [Concomitant]
     Indication: CONGESTIVE CARDIOMYOPATHY
     Dosage: 1.6 per day
     Route: 042
     Dates: start: 201003, end: 2010
  20. CORDARONE [Concomitant]
     Indication: VENTRICULAR TACHYCARDIA
     Dosage: 1UNIT Four times per day
     Route: 048
  21. PRIMPERAN [Concomitant]
     Indication: NAUSEA
     Dosage: 10MG Three times per day
     Route: 042
     Dates: start: 20100516, end: 20100517
  22. PERFALGAN [Concomitant]
     Indication: PAIN
     Route: 042
     Dates: start: 20100516, end: 20100518
  23. LASILIX [Concomitant]
     Indication: HYPERTENSION
     Dosage: 40MG Per day
     Route: 048
     Dates: end: 20100728

REACTIONS (3)
  - Cardiomyopathy [Recovered/Resolved]
  - Septic shock [Recovered/Resolved]
  - Pyelonephritis [Recovered/Resolved]
